FAERS Safety Report 25386461 (Version 1)
Quarter: 2025Q2

REPORT INFORMATION
  Report Type: Spontaneous
  Country: US (occurrence: None)
  Receive Date: 20250602
  Receipt Date: 20250602
  Transmission Date: 20250717
  Serious: Yes (Death, Hospitalization)
  Sender: FDA-CTU
  Company Number: None

PATIENT
  Age: 75 Year
  Sex: Male
  Weight: 82 kg

DRUGS (2)
  1. APIXABAN [Suspect]
     Active Substance: APIXABAN
     Indication: Atrial fibrillation
     Dosage: FREQUENCY : TWICE A DAY;?
     Route: 048
  2. CLOPIDOGREL BISULFATE [Suspect]
     Active Substance: CLOPIDOGREL BISULFATE
     Dosage: FREQUENCY : DAILY;?
     Route: 048

REACTIONS (5)
  - Anaemia [None]
  - Haemorrhage [None]
  - Cardiac failure congestive [None]
  - Refusal of treatment by patient [None]
  - Therapy interrupted [None]

NARRATIVE: CASE EVENT DATE: 20250521
